FAERS Safety Report 17566235 (Version 1)
Quarter: 2020Q1

REPORT INFORMATION
  Report Type: Report from Study
  Country: CA (occurrence: CA)
  Receive Date: 20200320
  Receipt Date: 20200320
  Transmission Date: 20200409
  Serious: Yes (Hospitalization)
  Sender: FDA-Public Use
  Company Number: CA-JNJFOC-20200321517

PATIENT

DRUGS (1)
  1. SIMPONI [Suspect]
     Active Substance: GOLIMUMAB
     Indication: ANKYLOSING SPONDYLITIS
     Dosage: PARENT^S DOSE
     Route: 064
     Dates: start: 20180620

REACTIONS (5)
  - Weight decreased [Recovering/Resolving]
  - Foetal exposure during pregnancy [Unknown]
  - Urinary tract infection [Unknown]
  - Anaemia [Unknown]
  - Exposure via breast milk [Unknown]
